FAERS Safety Report 9468552 (Version 1)
Quarter: 2013Q3

REPORT INFORMATION
  Report Type: Spontaneous
  Country: US (occurrence: US)
  Receive Date: 20130821
  Receipt Date: 20130821
  Transmission Date: 20140515
  Serious: Yes (Hospitalization)
  Sender: FDA-Public Use
  Company Number: US-GLAXOSMITHKLINE-A1038017A

PATIENT
  Sex: Male

DRUGS (4)
  1. ADVAIR [Suspect]
     Indication: ASTHMA
     Dosage: 1PUFF PER DAY
     Route: 055
  2. ADVAIR [Suspect]
     Indication: ASTHMA
     Route: 065
  3. PREVACID [Concomitant]
  4. VENTOLIN [Concomitant]

REACTIONS (7)
  - Barrett^s oesophagus [Recovering/Resolving]
  - Muscle tightness [Recovering/Resolving]
  - Neck pain [Recovering/Resolving]
  - Off label use [Recovering/Resolving]
  - Trismus [Recovering/Resolving]
  - Pain [Recovering/Resolving]
  - Asthma [Recovering/Resolving]
